FAERS Safety Report 7276674-7 (Version None)
Quarter: 2011Q1

REPORT INFORMATION
  Report Type: 
  Country: None (occurrence: None)
  Receive Date: 20110204
  Receipt Date: 20110126
  Transmission Date: 20110831
  Serious: Yes (Hospitalization, Other)
  Sender: FDA-Public Use
  Company Number: JP-MERCK-1012USA00985

PATIENT
  Age: 83 Year
  Sex: Female

DRUGS (8)
  1. ASPARA CA [Concomitant]
     Indication: OSTEOPOROSIS
     Route: 048
  2. FOSAMAX [Suspect]
     Route: 048
     Dates: start: 20030425, end: 20071127
  3. GLAKAY [Concomitant]
     Route: 048
     Dates: start: 20010412
  4. CALMISAL [Concomitant]
     Route: 048
     Dates: start: 19980526
  5. RANITAC [Concomitant]
     Indication: GASTRITIS
     Route: 048
     Dates: end: 20100515
  6. DIDRONEL [Concomitant]
     Route: 048
     Dates: start: 20010329
  7. FOSAMAX [Suspect]
     Indication: OSTEOPOROSIS
     Route: 048
     Dates: start: 20071128, end: 20100515
  8. D-ALPHA [Concomitant]
     Indication: OSTEOPOROSIS
     Route: 048

REACTIONS (2)
  - FEMUR FRACTURE [None]
  - EXOSTOSIS [None]
